FAERS Safety Report 10466297 (Version 1)
Quarter: 2014Q3

REPORT INFORMATION
  Report Type: Spontaneous
  Country: US (occurrence: None)
  Receive Date: 20140919
  Receipt Date: 20140919
  Transmission Date: 20150326
  Serious: Yes (Disabling, Other)
  Sender: FDA-Public Use
  Company Number: None

PATIENT
  Age: 51 Year
  Sex: Female
  Weight: 58.97 kg

DRUGS (2)
  1. PREDNISONE 5 MG ACTAVIS }BOUGHT AT RITE AID [Suspect]
     Active Substance: PREDNISONE
     Indication: BRONCHITIS
     Dosage: FIRST 3 DAUS -8 PILLS DAILY NEXT 3 DAYS-4 PILLS DAILY NEXT DAY-2 PILLS
     Dates: start: 20111021, end: 20111029
  2. LEVOFLOXACIN 500 MG. DR. REDDYS LAB }BOUGHT AT RITE AID [Suspect]
     Active Substance: LEVOFLOXACIN
     Indication: BRONCHITIS
     Dosage: 1X DAILY?NEXT DAY-1 PILL?LAST DAY-1 PILL
     Dates: start: 20111020

REACTIONS (6)
  - Muscular weakness [None]
  - Joint crepitation [None]
  - Pain in extremity [None]
  - Presyncope [None]
  - Burning sensation [None]
  - Muscle atrophy [None]

NARRATIVE: CASE EVENT DATE: 20111020
